FAERS Safety Report 17214893 (Version 1)
Quarter: 2019Q4

REPORT INFORMATION
  Report Type: Spontaneous
  Country: ES (occurrence: ES)
  Receive Date: 20191230
  Receipt Date: 20191230
  Transmission Date: 20200122
  Serious: Yes (Hospitalization, Other)
  Sender: FDA-Public Use
  Company Number: ES-SA-2019SA354685

PATIENT
  Age: 30 Year
  Sex: Female

DRUGS (3)
  1. LEMTRADA [Suspect]
     Active Substance: ALEMTUZUMAB
     Indication: RELAPSING-REMITTING MULTIPLE SCLEROSIS
     Dosage: UNK UNK, UNK
     Route: 041
     Dates: start: 20171211, end: 20171215
  2. LEMTRADA [Suspect]
     Active Substance: ALEMTUZUMAB
     Dosage: UNK UNK, UNK
     Route: 041
     Dates: start: 20181209
  3. CLAVERSAL [Concomitant]
     Active Substance: MESALAMINE
     Dosage: 500 MG, Q8H
     Route: 065

REACTIONS (9)
  - Urinary tract infection [Unknown]
  - Colitis [Unknown]
  - Lymphopenia [Unknown]
  - Diarrhoea [Unknown]
  - Nausea [Unknown]
  - Pyrexia [Unknown]
  - Abdominal pain [Unknown]
  - Rectal haemorrhage [Unknown]
  - Vomiting [Unknown]

NARRATIVE: CASE EVENT DATE: 2019
